FAERS Safety Report 16161597 (Version 4)
Quarter: 2020Q1

REPORT INFORMATION
  Report Type: Report from Study
  Country: FI (occurrence: FI)
  Receive Date: 20190405
  Receipt Date: 20200225
  Transmission Date: 20200409
  Serious: Yes (Hospitalization, Other)
  Sender: FDA-Public Use
  Company Number: FI-ACCORD-118329

PATIENT
  Age: 31 Year
  Sex: Male

DRUGS (8)
  1. OPAMOX [Concomitant]
     Active Substance: OXAZEPAM
     Indication: PRODUCT USED FOR UNKNOWN INDICATION
     Dosage: 2 IN 0.5 D, 15 MILLIGRAM, BID
     Route: 065
  2. SIMVASTATIN. [Concomitant]
     Active Substance: SIMVASTATIN
     Dosage: 20 MG, PER DAY
  3. PRIMASPAN [Concomitant]
     Active Substance: ASPIRIN
     Dosage: 100 MG, PER DAY
  4. LEPONEX [Suspect]
     Active Substance: CLOZAPINE
     Indication: PRODUCT USED FOR UNKNOWN INDICATION
     Dosage: 100 MG FROM 22-NOV-2018 TO 24-NOV-2018, 200 MG FROM 20-NOV-2018 TO 22-NOV-2018
     Route: 065
     Dates: start: 20181108, end: 20181120
  5. BRINTELLIX [Concomitant]
     Active Substance: VORTIOXETINE HYDROBROMIDE
     Indication: PRODUCT USED FOR UNKNOWN INDICATION
     Dosage: 10 MILLIGRAM, QD
     Route: 065
     Dates: start: 201804
  6. BISOPROLOL [Concomitant]
     Active Substance: BISOPROLOL
     Dosage: 1.5 DF, 2X PER DAY
  7. ARIPIPRAZOLE. [Suspect]
     Active Substance: ARIPIPRAZOLE
     Indication: PRODUCT USED FOR UNKNOWN INDICATION
     Dosage: ALSO RECEIVED 15 MG TILL APR-2018,30 MG, QD
     Route: 065
     Dates: start: 201804, end: 20181217
  8. ZALASTA [Suspect]
     Active Substance: OLANZAPINE
     Indication: SCHIZOPHRENIA
     Dosage: 15 MG FROM 21-DEC-2018, 5 MG FROM 10-DEC-2018 TO 17-DEC-2018, 10 MG FROM 17-DEC-2018 TO 21-DEC-2018
     Route: 065
     Dates: start: 201804, end: 20181217

REACTIONS (11)
  - Schizophrenia [Unknown]
  - Myocarditis [Recovered/Resolved]
  - Pneumonia [Recovered/Resolved]
  - Circulatory collapse [Recovered/Resolved]
  - Eosinophil count increased [Recovered/Resolved]
  - Syncope [Recovered/Resolved]
  - Palpitations [Unknown]
  - Pulse abnormal [Recovered/Resolved]
  - Wound haemorrhage [Recovered/Resolved]
  - Angina pectoris [Unknown]
  - Chest pain [Recovered/Resolved]

NARRATIVE: CASE EVENT DATE: 201811
